FAERS Safety Report 6087230-0 (Version None)
Quarter: 2009Q1

REPORT INFORMATION
  Report Type: 
  Country: None (occurrence: None)
  Receive Date: 20090219
  Receipt Date: 20090219
  Transmission Date: 20090719
  Serious: No
  Sender: FDA-Public Use
  Company Number: None

PATIENT
  Age: 43 Year
  Sex: Male
  Weight: 112.9457 kg

DRUGS (1)
  1. TAMSULOSIN HCL [Suspect]
     Dosage: 0.4MG Q HS PO 35 DAYS STILL ON
     Route: 048

REACTIONS (2)
  - BACK PAIN [None]
  - X-RAY ABNORMAL [None]
